FAERS Safety Report 4653238-2 (Version None)
Quarter: 2005Q2

REPORT INFORMATION
  Report Type: 
  Country: None (occurrence: None)
  Receive Date: 20050503
  Receipt Date: 20050420
  Transmission Date: 20051028
  Serious: Yes (Hospitalization, Disabling, Other)
  Sender: FDA-Public Use
  Company Number: 2005063462

PATIENT
  Age: 62 Year
  Sex: Female

DRUGS (2)
  1. FRAGMIN [Suspect]
     Indication: DIALYSIS
     Dosage: INTRAVENOUS
     Route: 042
  2. AMINOLEBAN (AMINO ACIDS NOS) [Concomitant]

REACTIONS (6)
  - ANAEMIA [None]
  - EPIDERMAL NECROSIS [None]
  - HEPATIC ENCEPHALOPATHY [None]
  - SKIN ULCER [None]
  - SUBCUTANEOUS HAEMATOMA [None]
  - SWELLING [None]
